FAERS Safety Report 9380799 (Version 1)
Quarter: 2013Q3

REPORT INFORMATION
  Report Type: Spontaneous
  Country: US (occurrence: US)
  Receive Date: 20130702
  Receipt Date: 20130702
  Transmission Date: 20140515
  Serious: Yes (Hospitalization, Other)
  Sender: FDA-Public Use
  Company Number: US-B.I. PHARMACEUTICALS,INC./RIDGEFIELD-2013-BI-18464BP

PATIENT
  Age: 71 Year
  Sex: Female
  Weight: 90 kg

DRUGS (2)
  1. PRADAXA [Suspect]
     Indication: ATRIAL FIBRILLATION
     Dosage: 300 MG
     Route: 048
     Dates: start: 2011, end: 201305
  2. PRADAXA [Suspect]
     Route: 048

REACTIONS (2)
  - Aortic aneurysm [Recovered/Resolved]
  - Cardiac operation [Unknown]
